FAERS Safety Report 8242745-1 (Version None)
Quarter: 2012Q1

REPORT INFORMATION
  Report Type: 
  Country: None (occurrence: None)
  Receive Date: 20120329
  Receipt Date: 20120321
  Transmission Date: 20120608
  Serious: Yes (Other)
  Sender: FDA-Public Use
  Company Number: RU-BRISTOL-MYERS SQUIBB COMPANY-16469587

PATIENT
  Age: 55 Year
  Sex: Female

DRUGS (1)
  1. FOSINOPRIL SODIUM [Suspect]
     Route: 048

REACTIONS (3)
  - BURNING SENSATION [None]
  - URTICARIA [None]
  - RASH PRURITIC [None]
